FAERS Safety Report 6138766-5 (Version None)
Quarter: 2009Q1

REPORT INFORMATION
  Report Type: 
  Country: None (occurrence: None)
  Receive Date: 20090331
  Receipt Date: 20090319
  Transmission Date: 20090719
  Serious: Yes (Hospitalization)
  Sender: FDA-Public Use
  Company Number: US-WYE-H08650009

PATIENT
  Age: 70 Year
  Sex: Male
  Weight: 140.74 kg

DRUGS (5)
  1. EFFEXOR XR [Suspect]
     Indication: DEPRESSION
     Dosage: DOSE AND FREQUENCY UNSPECIFIED
     Route: 048
     Dates: start: 20060101
  2. EFFEXOR XR [Suspect]
     Dosage: ^NOT TAKING HIS DAILY DOSE CONSISTENTLY^
     Route: 048
     Dates: end: 20090301
  3. EFFEXOR XR [Suspect]
     Dosage: RESTARTED DOSE AND FREQUENCY UNSPECIFIED
     Route: 048
     Dates: start: 20090301
  4. FLUCONAZOLE [Concomitant]
     Dosage: UNSPECIFIED
     Dates: start: 20090301, end: 20090301
  5. INSULIN [Concomitant]
     Dosage: UNSPECIFIED

REACTIONS (7)
  - DEPRESSED LEVEL OF CONSCIOUSNESS [None]
  - DYSPHAGIA [None]
  - FALL [None]
  - INAPPROPRIATE SCHEDULE OF DRUG ADMINISTRATION [None]
  - SOMNOLENCE [None]
  - SPEECH DISORDER [None]
  - UNRESPONSIVE TO STIMULI [None]
